FAERS Safety Report 15304061 (Version 2)
Quarter: 2018Q3

REPORT INFORMATION
  Report Type: Report from Study
  Country: GB (occurrence: GB)
  Receive Date: 20180821
  Receipt Date: 20180924
  Transmission Date: 20181010
  Serious: Yes (Other)
  Sender: FDA-Public Use
  Company Number: GB-B.I. PHARMACEUTICALS,INC./RIDGEFIELD-2018-12-000683

PATIENT
  Sex: Female

DRUGS (11)
  1. PIRFENIDONE. [Suspect]
     Active Substance: PIRFENIDONE
     Indication: IDIOPATHIC PULMONARY FIBROSIS
     Route: 048
     Dates: start: 20170908
  2. PIRFENIDONE. [Suspect]
     Active Substance: PIRFENIDONE
     Route: 048
  3. PIRFENIDONE. [Suspect]
     Active Substance: PIRFENIDONE
     Route: 048
  4. PIRFENIDONE. [Suspect]
     Active Substance: PIRFENIDONE
     Dosage: 534 MG
     Route: 048
     Dates: start: 20170921
  5. PIRFENIDONE. [Suspect]
     Active Substance: PIRFENIDONE
     Route: 048
     Dates: start: 20170908
  6. PIRFENIDONE. [Suspect]
     Active Substance: PIRFENIDONE
     Route: 048
  7. NINTEDANIB [Suspect]
     Active Substance: NINTEDANIB
     Indication: IDIOPATHIC PULMONARY FIBROSIS
     Route: 065
  8. PIRFENIDONE. [Suspect]
     Active Substance: PIRFENIDONE
     Route: 048
     Dates: start: 20161118
  9. PIRFENIDONE. [Suspect]
     Active Substance: PIRFENIDONE
     Route: 048
     Dates: start: 20161118
  10. PIRFENIDONE. [Suspect]
     Active Substance: PIRFENIDONE
     Route: 048
     Dates: start: 20161103
  11. PIRFENIDONE. [Suspect]
     Active Substance: PIRFENIDONE
     Route: 048

REACTIONS (44)
  - Pruritus [Unknown]
  - Hyperaesthesia [Unknown]
  - Somnolence [Unknown]
  - Sensory disturbance [Unknown]
  - Cough [Recovered/Resolved]
  - Rash [Unknown]
  - Upper-airway cough syndrome [Unknown]
  - Decreased appetite [Unknown]
  - Catarrh [Not Recovered/Not Resolved]
  - Skin reaction [Unknown]
  - Sneezing [Recovered/Resolved]
  - Nasopharyngitis [Recovered/Resolved]
  - Pruritus [Not Recovered/Not Resolved]
  - Chromaturia [Unknown]
  - Skin burning sensation [Unknown]
  - Feeling hot [Unknown]
  - Rhinorrhoea [Unknown]
  - Oropharyngeal pain [Recovered/Resolved]
  - Rash pruritic [Unknown]
  - Diarrhoea [Unknown]
  - Mouth ulceration [Unknown]
  - Miliaria [Unknown]
  - Lip pain [Unknown]
  - Fatigue [Not Recovered/Not Resolved]
  - Hepatic enzyme increased [Unknown]
  - Hypoaesthesia [Unknown]
  - Dyspnoea [Unknown]
  - Bedridden [Unknown]
  - Photophobia [Unknown]
  - Sunburn [Recovering/Resolving]
  - Thermal burn [Recovering/Resolving]
  - Oxygen saturation decreased [Unknown]
  - Erythema [Unknown]
  - Dysgeusia [Unknown]
  - Eye pain [Unknown]
  - Gingival swelling [Unknown]
  - Erythema [Recovered/Resolved]
  - Urine abnormality [Unknown]
  - Pharyngitis [Unknown]
  - Depressed mood [Unknown]
  - Photosensitivity reaction [Unknown]
  - Lip swelling [Unknown]
  - Hypersomnia [Unknown]
  - Influenza like illness [Unknown]
